FAERS Safety Report 7326701-3 (Version None)
Quarter: 2011Q1

REPORT INFORMATION
  Report Type: 
  Country: None (occurrence: None)
  Receive Date: 20110223
  Receipt Date: 20110210
  Transmission Date: 20110831
  Serious: Yes (Other)
  Sender: FDA-Public Use
  Company Number: UTC-005214

PATIENT
  Age: 67 Year
  Sex: Female
  Weight: 122.5 kg

DRUGS (2)
  1. TYVASO [Suspect]
     Indication: PULMONARY ARTERIAL HYPERTENSION
     Dosage: INHALATION
     Route: 055
     Dates: start: 20100713, end: 20110209
  2. REVATIO [Concomitant]

REACTIONS (1)
  - AORTIC STENOSIS [None]
